FAERS Safety Report 19851731 (Version 2)
Quarter: 2021Q4

REPORT INFORMATION
  Report Type: Report from Study
  Country: None (occurrence: JM)
  Receive Date: 20210917
  Receipt Date: 20211004
  Transmission Date: 20220303
  Serious: Yes (Death)
  Sender: FDA-Public Use
  Company Number: JM-JNJFOC-20210928156

PATIENT
  Age: 73 Year
  Sex: Male

DRUGS (1)
  1. IMBRUVICA [Suspect]
     Active Substance: IBRUTINIB
     Indication: Product used for unknown indication
     Route: 048
     Dates: start: 202109

REACTIONS (1)
  - Disease complication [Fatal]
